FAERS Safety Report 9129994 (Version 1)
Quarter: 2013Q1

REPORT INFORMATION
  Report Type: Spontaneous
  Country: US (occurrence: US)
  Receive Date: 20130122
  Receipt Date: 20130122
  Transmission Date: 20140127
  Serious: Yes (Other)
  Sender: FDA-Public Use
  Company Number: US-RB-048435-13

PATIENT
  Age: 39 Year
  Sex: Female

DRUGS (5)
  1. MUCINEX FAST MAX ADULT COLD FLU THROAT (ACETAMINOPHEN) [Suspect]
     Indication: PRODUCT USED FOR UNKNOWN INDICATION
     Dosage: 20 ML ONE DOSE
     Route: 048
     Dates: start: 20130107
  2. MUCINEX FAST MAX ADULT COLD FLU THROAT (DEXTROMETHORPHAN HYDROBROMIDE) [Suspect]
  3. MUCINEX FAST MAX ADULT COLD FLU THROAT (GUAIFENESIN) [Suspect]
  4. MUCINEX FAST MAX ADULT COLD FLU THROAT (PHENYLEPHRINE HYDROCHLORIDE) [Suspect]
  5. SAMBUCOL-ELDERBERRY [Concomitant]
     Indication: MEDICAL DIET

REACTIONS (9)
  - Hypersensitivity [Not Recovered/Not Resolved]
  - Pharyngeal oedema [Not Recovered/Not Resolved]
  - Pharyngeal hypoaesthesia [Not Recovered/Not Resolved]
  - Anxiety [Not Recovered/Not Resolved]
  - Feeling cold [Not Recovered/Not Resolved]
  - Pain [Not Recovered/Not Resolved]
  - Headache [Not Recovered/Not Resolved]
  - Throat irritation [Not Recovered/Not Resolved]
  - Dizziness [Not Recovered/Not Resolved]
